FAERS Safety Report 12658264 (Version 1)
Quarter: 2016Q3

REPORT INFORMATION
  Report Type: Spontaneous
  Country: US (occurrence: US)
  Receive Date: 20160817
  Receipt Date: 20160817
  Transmission Date: 20161109
  Serious: Yes (Hospitalization)
  Sender: FDA-Public Use
  Company Number: US-HORIZON-ACT-0189-2016

PATIENT
  Age: 31 Year
  Sex: Female

DRUGS (3)
  1. CEFDINIR. [Concomitant]
     Active Substance: CEFDINIR
  2. ACTIMMUNE [Suspect]
     Active Substance: INTERFERON GAMMA-1B
     Dosage: 0.4 ML THREE TIMES WEEKLY
  3. ITRACONAZOLE. [Concomitant]
     Active Substance: ITRACONAZOLE

REACTIONS (2)
  - Bacterial infection [Recovered/Resolved]
  - Influenza like illness [Unknown]
